FAERS Safety Report 13827980 (Version 2)
Quarter: 2017Q3

REPORT INFORMATION
  Report Type: Report from Study
  Country: None (occurrence: BR)
  Receive Date: 20170803
  Receipt Date: 20170807
  Transmission Date: 20171127
  Serious: Yes (Other)
  Sender: FDA-Public Use
  Company Number: BR-ABBVIE-17K-020-2058116-00

PATIENT
  Age: 40 Year
  Sex: Male
  Weight: 87 kg

DRUGS (3)
  1. HUMIRA [Suspect]
     Active Substance: ADALIMUMAB
     Indication: UVEITIS
     Route: 058
     Dates: start: 20170101, end: 20170201
  2. DULOXETINE. [Concomitant]
     Active Substance: DULOXETINE
     Indication: PRODUCT USED FOR UNKNOWN INDICATION
  3. PREGABALIN. [Concomitant]
     Active Substance: PREGABALIN
     Indication: PRODUCT USED FOR UNKNOWN INDICATION

REACTIONS (13)
  - Osteoarthritis [Recovering/Resolving]
  - Platelet count decreased [Recovering/Resolving]
  - Drug ineffective [Unknown]
  - Eye inflammation [Recovering/Resolving]
  - Ocular hyperaemia [Recovered/Resolved]
  - Visual impairment [Not Recovered/Not Resolved]
  - Tendonitis [Recovering/Resolving]
  - Anxiety [Recovering/Resolving]
  - Depression [Recovering/Resolving]
  - Hypertension [Recovered/Resolved]
  - Eye pain [Recovering/Resolving]
  - Sacroiliitis [Recovering/Resolving]
  - Pharyngitis [Recovered/Resolved]

NARRATIVE: CASE EVENT DATE: 2017
